FAERS Safety Report 12828359 (Version 2)
Quarter: 2017Q1

REPORT INFORMATION
  Report Type: Report from Study
  Country: AU (occurrence: AU)
  Receive Date: 20161007
  Receipt Date: 20170301
  Transmission Date: 20170428
  Serious: Yes (Death, Other)
  Sender: FDA-Public Use
  Company Number: AU-CELGENEUS-AUS-2016100458

PATIENT

DRUGS (1)
  1. REVLIMID [Suspect]
     Active Substance: LENALIDOMIDE
     Indication: CHRONIC LYMPHOCYTIC LEUKAEMIA
     Route: 048

REACTIONS (12)
  - Prostatitis [Unknown]
  - Seizure [Unknown]
  - Pneumonia [Unknown]
  - Squamous cell carcinoma of skin [Unknown]
  - Acute kidney injury [Unknown]
  - Lung infiltration [Unknown]
  - Vomiting [Unknown]
  - Neutropenia [Unknown]
  - Tumour flare [Unknown]
  - Anogenital warts [Unknown]
  - Sudden death [Fatal]
  - Disease progression [Unknown]
